FAERS Safety Report 6354669-5 (Version None)
Quarter: 2009Q3

REPORT INFORMATION
  Report Type: 
  Country: None (occurrence: None)
  Receive Date: 20090909
  Receipt Date: 20090826
  Transmission Date: 20100115
  Serious: Yes (Death, Other)
  Sender: FDA-Public Use
  Company Number: 2008-02112

PATIENT
  Age: 60 Year
  Sex: Male
  Weight: 69 kg

DRUGS (10)
  1. VELCADE [Suspect]
     Indication: MULTIPLE MYELOMA
     Dosage: 2.2 MG, INTRAVENOUS ; 1.7 MG, INTRAVENOUS ; 2.2 MG, INTRAVENOUS
     Route: 042
     Dates: start: 20070309, end: 20070430
  2. VELCADE [Suspect]
     Indication: MULTIPLE MYELOMA
     Dosage: 2.2 MG, INTRAVENOUS ; 1.7 MG, INTRAVENOUS ; 2.2 MG, INTRAVENOUS
     Route: 042
     Dates: start: 20070503, end: 20070503
  3. VELCADE [Suspect]
     Indication: MULTIPLE MYELOMA
     Dosage: 2.2 MG, INTRAVENOUS ; 1.7 MG, INTRAVENOUS ; 2.2 MG, INTRAVENOUS
     Route: 042
     Dates: start: 20070514, end: 20070524
  4. DEXAMETHASONE TAB [Suspect]
     Indication: MULTIPLE MYELOMA
     Dosage: 20 MG, INTRAVENOUS
     Route: 042
     Dates: start: 20070309, end: 20070525
  5. MAG-LAX (MAGNESIUM HYDROXIDE, PARAFFIN, LIQUID) [Concomitant]
  6. SULFAMETHOXAZOLE AND TRIMETHOPRIM [Concomitant]
  7. FAMOTIDINE [Concomitant]
  8. LENDORM [Concomitant]
  9. ONE-ALPHA (ALFACALCIDOL) [Concomitant]
  10. SPIRIVA [Concomitant]

REACTIONS (8)
  - DIARRHOEA [None]
  - DISEASE PROGRESSION [None]
  - ERYTHEMA MULTIFORME [None]
  - INSOMNIA [None]
  - NEOPLASM [None]
  - PLATELET COUNT DECREASED [None]
  - PYREXIA [None]
  - WHITE BLOOD CELL COUNT DECREASED [None]
